FAERS Safety Report 8321688-9 (Version None)
Quarter: 2012Q2

REPORT INFORMATION
  Report Type: 
  Country: None (occurrence: None)
  Receive Date: 20120430
  Receipt Date: 20091105
  Transmission Date: 20120825
  Serious: No
  Sender: FDA-Public Use
  Company Number: US-TEVA-2009012125

PATIENT
  Sex: Male
  Weight: 77.18 kg

DRUGS (5)
  1. ALLEGRA [Concomitant]
  2. NASONEX [Concomitant]
     Dates: start: 20080101
  3. NUVIGIL [Suspect]
     Indication: SLEEP APNOEA SYNDROME
     Dosage: 150 MILLIGRAM;
     Route: 048
     Dates: start: 20091103
  4. MULTI-VITAMINS [Concomitant]
  5. SINGULAIR [Concomitant]
     Dates: start: 20080101

REACTIONS (2)
  - INSOMNIA [None]
  - TACHYPHRENIA [None]
